FAERS Safety Report 19481690 (Version 2)
Quarter: 2021Q4

REPORT INFORMATION
  Report Type: Other
  Country: JP (occurrence: JP)
  Receive Date: 20210701
  Receipt Date: 20211013
  Transmission Date: 20220303
  Serious: Yes (Other)
  Sender: FDA-Public Use
  Company Number: JP-ROCHE-2858568

PATIENT

DRUGS (6)
  1. ATEZOLIZUMAB [Suspect]
     Active Substance: ATEZOLIZUMAB
     Indication: Neoplasm malignant
     Route: 065
  2. NIVOLUMAB [Suspect]
     Active Substance: NIVOLUMAB
     Indication: Neoplasm malignant
     Dosage: 3 MG/KG BODY WEIGHT OR 240 MG PER BODY
     Route: 065
  3. PEMBROLIZUMAB [Suspect]
     Active Substance: PEMBROLIZUMAB
     Indication: Neoplasm malignant
     Dosage: MG/KG BODY WEIGHT OR 200 MG PER BODY
     Route: 065
  4. IPILIMUMAB [Suspect]
     Active Substance: IPILIMUMAB
     Indication: Neoplasm malignant
     Route: 065
  5. DURVALUMAB [Suspect]
     Active Substance: DURVALUMAB
     Indication: Neoplasm malignant
     Route: 065
  6. AVELUMAB [Suspect]
     Active Substance: AVELUMAB
     Indication: Neoplasm malignant
     Route: 065

REACTIONS (4)
  - Diarrhoea [Unknown]
  - Colitis [Unknown]
  - Pneumonia [Unknown]
  - Dermatitis [Unknown]
